FAERS Safety Report 9171751 (Version 1)
Quarter: 2013Q1

REPORT INFORMATION
  Report Type: Report from Study
  Country: US (occurrence: US)
  Receive Date: 20130319
  Receipt Date: 20130319
  Transmission Date: 20140127
  Serious: Yes (Other)
  Sender: FDA-Public Use
  Company Number: US-ASTRAZENECA-2013SE16344

PATIENT
  Sex: 0

DRUGS (3)
  1. VANDETANIB [Suspect]
     Indication: NEOPLASM MALIGNANT
     Route: 048
  2. GEMCITABINE [Suspect]
     Indication: NEOPLASM MALIGNANT
     Dosage: 1000 MG/M2 EVERY 14 DAYS
     Route: 042
  3. OXALIPLATIN [Suspect]
     Indication: NEOPLASM MALIGNANT
     Dosage: 85 MG/M2 EVERY 14 DAYS
     Route: 042

REACTIONS (1)
  - Deep vein thrombosis [Unknown]
